FAERS Safety Report 9128660 (Version 5)
Quarter: 2013Q3

REPORT INFORMATION
  Report Type: Report from Study
  Country: JP (occurrence: JP)
  Receive Date: 20130228
  Receipt Date: 20130924
  Transmission Date: 20140515
  Serious: Yes (Hospitalization, Other)
  Sender: FDA-Public Use
  Company Number: JP-UCBSA-074393

PATIENT
  Age: 32 Year
  Sex: Male
  Weight: 68.4 kg

DRUGS (12)
  1. LEVETIRACETAM [Suspect]
     Indication: EPILEPSY
     Route: 048
     Dates: start: 20120725, end: 20120809
  2. LEVETIRACETAM [Suspect]
     Indication: EPILEPSY
     Dosage: 2000 MG A DAY
     Route: 048
     Dates: start: 20120809, end: 20130221
  3. MONTELUKAST [Concomitant]
     Indication: ASTHMA
     Route: 048
     Dates: start: 20100628
  4. BUDESONIDE/FORMOTEROL FUMARATE HYDRATE [Concomitant]
     Indication: ASTHMA
     Dosage: ROUTE IH
     Dates: start: 20121015
  5. PROCATEROL HYDROCHLORIDE HYDRATE [Concomitant]
     Indication: ASTHMA
     Dosage: ROUTE IH
     Dates: start: 20110817
  6. SALICYLIC ACID [Concomitant]
     Dosage: DOSE QS
     Route: 061
     Dates: start: 20121108
  7. BETAMETHASONE VALERATE [Concomitant]
     Dosage: DOSE QS
     Route: 061
     Dates: start: 20121108
  8. GENTAMICIN SULFATE [Concomitant]
     Dosage: DOSE QS
     Route: 061
     Dates: start: 20121108
  9. ALCLOMETASONE DIPROPIONATE [Concomitant]
     Dosage: DOSE QS
     Route: 061
     Dates: start: 20121108
  10. WHITE PETROLEUM [Concomitant]
     Dosage: DOSE QS
     Route: 061
     Dates: start: 20121108
  11. YOKUKANSAN [Concomitant]
     Route: 048
     Dates: start: 20121225, end: 20130221
  12. CETIRIZINE HYDROCHLORIDE [Concomitant]
     Route: 048
     Dates: start: 20130115

REACTIONS (2)
  - Irritability [Recovered/Resolved]
  - Postictal psychosis [Recovered/Resolved]
